FAERS Safety Report 6547530-4 (Version None)
Quarter: 2010Q1

REPORT INFORMATION
  Report Type: 
  Country: None (occurrence: None)
  Receive Date: 20100122
  Receipt Date: 20100120
  Transmission Date: 20100710
  Serious: Yes (Hospitalization)
  Sender: FDA-Public Use
  Company Number: JP-B.I. PHARMACEUTICALS,INC./RIDGEFIELD-2010-BP-00718NB

PATIENT
  Age: 75 Year
  Sex: Male

DRUGS (6)
  1. SPIRIVA [Suspect]
     Indication: CHRONIC OBSTRUCTIVE PULMONARY DISEASE
     Dosage: 18 MCG
     Route: 055
     Dates: start: 20080225
  2. HARNAL [Concomitant]
     Indication: BENIGN PROSTATIC HYPERPLASIA
     Dosage: 1DF
     Route: 048
     Dates: start: 20081121
  3. THEOPHYLLINE [Concomitant]
  4. ADOAIR [Concomitant]
     Route: 055
  5. MUCODYNE [Concomitant]
     Route: 048
  6. MUCOSOLVAN [Concomitant]
     Route: 048

REACTIONS (2)
  - PNEUMONIA BACTERIAL [None]
  - URINARY RETENTION [None]
